FAERS Safety Report 23322520 (Version 1)
Quarter: 2023Q4

REPORT INFORMATION
  Report Type: Spontaneous
  Country: US (occurrence: None)
  Receive Date: 20231220
  Receipt Date: 20231220
  Transmission Date: 20240110
  Serious: No
  Sender: FDA-Public Use
  Company Number: None

PATIENT
  Sex: Male

DRUGS (2)
  1. ENTECAVIR [Suspect]
     Active Substance: ENTECAVIR
     Indication: Hepatitis B
     Dosage: FREQUENCY : DAILY;?
     Route: 048
     Dates: start: 20230831, end: 20231208
  2. TENOFOVIR [Concomitant]
     Active Substance: TENOFOVIR

REACTIONS (10)
  - Cognitive disorder [None]
  - Emotional disorder [None]
  - Nonspecific reaction [None]
  - Erectile dysfunction [None]
  - Libido decreased [None]
  - Anger [None]
  - Hypoaesthesia [None]
  - Amnesia [None]
  - Distractibility [None]
  - Emotional distress [None]

NARRATIVE: CASE EVENT DATE: 20231220
